FAERS Safety Report 17546082 (Version 1)
Quarter: 2020Q1

REPORT INFORMATION
  Report Type: Spontaneous
  Country: US (occurrence: US)
  Receive Date: 20200316
  Receipt Date: 20200316
  Transmission Date: 20200409
  Serious: Yes (Hospitalization)
  Sender: FDA-Public Use
  Company Number: None

PATIENT
  Age: 67 Year

DRUGS (1)
  1. ENBREL [Suspect]
     Active Substance: ETANERCEPT
     Indication: ARTHRITIS
     Dosage: ?          OTHER FREQUENCY:2X WEEKLY;?
     Route: 058
     Dates: start: 20180216

REACTIONS (2)
  - Therapy cessation [None]
  - Arthritis [None]

NARRATIVE: CASE EVENT DATE: 20200221
